FAERS Safety Report 10235381 (Version 2)
Quarter: 2014Q2

REPORT INFORMATION
  Report Type: Spontaneous
  Country: JP (occurrence: None)
  Receive Date: 20140611
  Receipt Date: 20140618
  Transmission Date: 20141212
  Serious: Yes (Life-Threatening)
  Sender: FDA-Public Use
  Company Number: SP07900

PATIENT
  Age: 87 Year
  Sex: Female

DRUGS (5)
  1. MOVIPREP [Suspect]
     Indication: BOWEL PREPARATION
     Route: 048
     Dates: start: 20140525, end: 20140525
  2. TALIO OD [Concomitant]
  3. CETILO [Concomitant]
  4. MEMARY [Concomitant]
  5. MYSLEE [Concomitant]

REACTIONS (4)
  - Shock [None]
  - Anaphylactic shock [None]
  - Respiratory arrest [None]
  - Unresponsive to stimuli [None]
